FAERS Safety Report 5134241-5 (Version None)
Quarter: 2006Q4

REPORT INFORMATION
  Report Type: 
  Country: None (occurrence: None)
  Receive Date: 20061019
  Receipt Date: 20061006
  Transmission Date: 20070319
  Serious: Yes (Other)
  Sender: FDA-Public Use
  Company Number: 2006114335

PATIENT
  Age: 74 Year
  Sex: Female
  Weight: 54 kg

DRUGS (5)
  1. SUTENT [Suspect]
     Indication: METASTATIC RENAL CELL CARCINOMA
     Dosage: SEE IMAGE, ORAL
     Route: 048
     Dates: start: 20051018, end: 20051227
  2. SUTENT [Suspect]
     Indication: METASTATIC RENAL CELL CARCINOMA
     Dosage: SEE IMAGE, ORAL
     Route: 048
     Dates: start: 20060111, end: 20060730
  3. STOMATOLOGICALS, MOUTH PREPARATIONS (STOMATOLOGICALS, MOUTH PREPARATIO [Concomitant]
  4. LOPERAMIDE HCL [Concomitant]
  5. GAVISCON [Concomitant]

REACTIONS (3)
  - CYTOLYTIC HEPATITIS [None]
  - HEPATITIS CHOLESTATIC [None]
  - HYPOTHYROIDISM [None]
